FAERS Safety Report 5573870-1 (Version None)
Quarter: 2007Q4

REPORT INFORMATION
  Report Type: 
  Country: None (occurrence: None)
  Receive Date: 20071226
  Receipt Date: 20071214
  Transmission Date: 20080405
  Serious: Yes (Other)
  Sender: FDA-Public Use
  Company Number: US-PFIZER INC-2007105465

PATIENT
  Sex: Female
  Weight: 89.8 kg

DRUGS (8)
  1. LYRICA [Suspect]
     Indication: NERVE INJURY
  2. HYDROCODONE BITARTRATE [Concomitant]
  3. OXYCODONE HCL [Concomitant]
  4. CYCLOBENZAPRINE HCL [Concomitant]
  5. AMITRIPTLINE HCL [Concomitant]
  6. VERAPAMIL [Concomitant]
  7. BENAZEPRIL HYDROCHLORIDE [Concomitant]
  8. FUROSEMIDE [Concomitant]

REACTIONS (5)
  - GAIT DISTURBANCE [None]
  - INTERVERTEBRAL DISC OPERATION [None]
  - MUSCLE SPASMS [None]
  - MUSCLE TIGHTNESS [None]
  - SPEECH DISORDER [None]
